FAERS Safety Report 8237358-1 (Version None)
Quarter: 2012Q1

REPORT INFORMATION
  Report Type: 
  Country: None (occurrence: None)
  Receive Date: 20120327
  Receipt Date: 20120314
  Transmission Date: 20120608
  Serious: Yes (Life-Threatening, Hospitalization, Other)
  Sender: FDA-Public Use
  Company Number: GB-RANBAXY-2011R1-48808

PATIENT
  Age: 20 Month
  Sex: Male
  Weight: 12.5 kg

DRUGS (11)
  1. FLUCONAZOLE [Interacting]
     Dosage: UNK
     Route: 042
  2. FLUCONAZOLE [Interacting]
     Indication: FUNGAL PERITONITIS
     Dosage: 3 MG/KG, 1DAYS
     Route: 048
  3. FLUCONAZOLE [Interacting]
     Dosage: UNK
     Route: 042
  4. FLUCONAZOLE [Interacting]
     Dosage: UNK
     Route: 042
  5. TACROLIMUS [Interacting]
     Indication: RENAL TRANSPLANT
     Dosage: 0.08MG/KG IN MORNING AND 0.12MG/KG AT NIGHT
     Route: 065
  6. METHYLPREDNISOLONE [Suspect]
     Indication: RENAL TRANSPLANT
     Dosage: UNK
     Route: 065
  7. AZATHIOPRINE [Suspect]
     Indication: RENAL TRANSPLANT
     Dosage: UNK, 1 DAYS
     Route: 065
  8. TACROLIMUS [Interacting]
     Dosage: 0.08 MG/KG, BID
     Route: 065
  9. FLUCONAZOLE [Interacting]
     Indication: CANDIDIASIS
  10. TACROLIMUS [Interacting]
     Indication: IMMUNOSUPPRESSION
     Dosage: 0.4MG/KG/DAY IN TWO DIVIDED DOSES
     Route: 065
  11. FLUCONAZOLE [Interacting]
     Dosage: UNK
     Route: 033

REACTIONS (11)
  - TOXICITY TO VARIOUS AGENTS [None]
  - GENERAL PHYSICAL HEALTH DETERIORATION [None]
  - ASCITES [None]
  - PERITONEAL CANDIDIASIS [None]
  - SEPTIC SHOCK [None]
  - PYREXIA [None]
  - COMPLICATIONS OF TRANSPLANTED KIDNEY [None]
  - STRABISMUS [None]
  - DRUG INTERACTION [None]
  - DEPRESSED LEVEL OF CONSCIOUSNESS [None]
  - IMMUNOSUPPRESSANT DRUG LEVEL INCREASED [None]
